FAERS Safety Report 25561028 (Version 1)
Quarter: 2025Q3

REPORT INFORMATION
  Report Type: Spontaneous
  Country: US (occurrence: US)
  Receive Date: 20250715
  Receipt Date: 20250715
  Transmission Date: 20251021
  Serious: No
  Sender: NOVO NORDISK
  Company Number: US-NOVOPROD-1427936

PATIENT
  Sex: Male

DRUGS (1)
  1. OZEMPIC [Suspect]
     Active Substance: SEMAGLUTIDE
     Indication: Type 2 diabetes mellitus
     Dosage: 2 MG, QW

REACTIONS (5)
  - COVID-19 [Recovered/Resolved]
  - Weight decreased [Unknown]
  - Asthenia [Unknown]
  - Taste disorder [Unknown]
  - Decreased appetite [Unknown]
